FAERS Safety Report 9290761 (Version 2)
Quarter: 2015Q2

REPORT INFORMATION
  Report Type: Spontaneous
  Country: FR (occurrence: FR)
  Receive Date: 20130515
  Receipt Date: 20150422
  Transmission Date: 20150821
  Serious: Yes (Other)
  Sender: FDA-Public Use
  Company Number: PHHY2013FR046557

PATIENT
  Age: 60 Year
  Sex: Male

DRUGS (8)
  1. FLUOROURACIL. [Concomitant]
     Active Substance: FLUOROURACIL
     Indication: ADENOCARCINOMA
     Dosage: 400 MG/M2, QD (ON DAY 1 AND DAY 15)
     Route: 065
  2. FLUOROURACIL. [Concomitant]
     Active Substance: FLUOROURACIL
     Dosage: 2400 MG/M2, QD (ON DAY 1 AND DAY 15)
     Route: 065
  3. ACETYLSALICYLIC ACID [Concomitant]
     Active Substance: ASPIRIN
     Indication: CORONARY ARTERY DISEASE
     Route: 065
  4. IVABRADINE [Concomitant]
     Active Substance: IVABRADINE
     Indication: CORONARY ARTERY DISEASE
     Dosage: 7.5 MG, BID
     Route: 065
  5. OXALIPLATIN. [Suspect]
     Active Substance: OXALIPLATIN
     Indication: ADENOCARCINOMA
     Dosage: 85 MG/M2, UNK
     Route: 065
  6. CETUXIMAB [Concomitant]
     Active Substance: CETUXIMAB
     Indication: ADENOCARCINOMA
     Route: 065
  7. DILTIAZEM [Concomitant]
     Active Substance: DILTIAZEM
     Indication: CORONARY ARTERY DISEASE
     Dosage: 90 MG, BID
     Route: 065
  8. MOLSIDOMINE [Concomitant]
     Active Substance: MOLSIDOMINE
     Indication: CORONARY ARTERY DISEASE
     Dosage: 2 MG, TID
     Route: 065

REACTIONS (4)
  - Metastases to liver [Unknown]
  - Jaundice [Recovering/Resolving]
  - Hepatic lesion [Unknown]
  - Nodular regenerative hyperplasia [Unknown]
